FAERS Safety Report 17734554 (Version 1)
Quarter: 2020Q2

REPORT INFORMATION
  Report Type: Spontaneous
  Country: US (occurrence: US)
  Receive Date: 20200501
  Receipt Date: 20200501
  Transmission Date: 20200714
  Serious: Yes (Death)
  Sender: FDA-Public Use
  Company Number: None

PATIENT
  Age: 52 Year
  Sex: Male

DRUGS (5)
  1. PREDNISONE TAB 10 MG [Concomitant]
  2. POT CHLORIDE TAB 10 MEQ [Concomitant]
  3. FUROSEMIDE TAB 40 MG [Concomitant]
  4. INLYTA [Suspect]
     Active Substance: AXITINIB
     Indication: RENAL CANCER
     Route: 048
     Dates: start: 20200316
  5. FLUDROCORT TAB 0.1 MG [Concomitant]

REACTIONS (1)
  - Death [None]
